FAERS Safety Report 6756321-0 (Version None)
Quarter: 2010Q2

REPORT INFORMATION
  Report Type: 
  Country: None (occurrence: None)
  Receive Date: 20100604
  Receipt Date: 20100525
  Transmission Date: 20101027
  Serious: No
  Sender: FDA-Public Use
  Company Number: US-ROCHE-703830

PATIENT
  Sex: Female
  Weight: 68 kg

DRUGS (2)
  1. CAPECITABINE [Suspect]
     Indication: COLORECTAL CANCER
     Dosage: STOPPED FOR A WEEK
     Route: 048
     Dates: end: 20100426
  2. CAPECITABINE [Suspect]
     Route: 048
     Dates: start: 20100503

REACTIONS (1)
  - ACNE [None]
